FAERS Safety Report 7811880-1 (Version None)
Quarter: 2011Q4

REPORT INFORMATION
  Report Type: 
  Country: None (occurrence: None)
  Receive Date: 20111013
  Receipt Date: 20111003
  Transmission Date: 20120403
  Serious: Yes (Hospitalization)
  Sender: FDA-Public Use
  Company Number: PHEH2011US04047

PATIENT
  Sex: Male

DRUGS (2)
  1. TASIGNA [Suspect]
     Indication: CHRONIC MYELOID LEUKAEMIA
     Dosage: 300 MG, BID
     Route: 048
     Dates: start: 20110401
  2. TASIGNA [Suspect]
     Dosage: 300 MG, BID
     Route: 048

REACTIONS (5)
  - DUODENAL ULCER [None]
  - NEOPLASM MALIGNANT [None]
  - PAIN [None]
  - OESOPHAGEAL ADENOCARCINOMA [None]
  - SMALL INTESTINAL HAEMORRHAGE [None]
